FAERS Safety Report 7747534-X (Version None)
Quarter: 2011Q3

REPORT INFORMATION
  Report Type: 
  Country: None (occurrence: None)
  Receive Date: 20110913
  Receipt Date: 20110907
  Transmission Date: 20111222
  Serious: Yes (Death)
  Sender: FDA-Public Use
  Company Number: JP-ASTRAZENECA-2011SE52739

PATIENT
  Age: 77 Year
  Sex: Male

DRUGS (3)
  1. MEROPENEM [Suspect]
     Route: 042
     Dates: start: 20110803, end: 20110822
  2. MIDOCIN [Concomitant]
     Indication: SEPSIS
     Dates: start: 20110709, end: 20110725
  3. MEROPENEM [Suspect]
     Indication: SEPSIS
     Route: 042
     Dates: start: 20110709, end: 20110713

REACTIONS (2)
  - SKIN EXFOLIATION [None]
  - RASH [None]
